FAERS Safety Report 14306875 (Version 1)
Quarter: 2017Q4

REPORT INFORMATION
  Report Type: Spontaneous
  Country: US (occurrence: US)
  Receive Date: 20171220
  Receipt Date: 20171220
  Transmission Date: 20180321
  Serious: Yes (Other)
  Sender: FDA-Public Use
  Company Number: US-ELI_LILLY_AND_COMPANY-US201712005210

PATIENT
  Age: 69 Year
  Sex: Female

DRUGS (2)
  1. HUMULIN N [Suspect]
     Active Substance: INSULIN HUMAN
     Indication: TYPE 1 DIABETES MELLITUS
     Dosage: 14 U, EACH MORNING
     Route: 058
  2. HUMULIN N [Suspect]
     Active Substance: INSULIN HUMAN
     Dosage: 14 U, EACH MORNING
     Route: 058

REACTIONS (7)
  - Blood glucose increased [Unknown]
  - Blood glucose increased [Unknown]
  - Incorrect dose administered [Recovering/Resolving]
  - Blood glucose decreased [Recovered/Resolved]
  - Injury associated with device [Recovered/Resolved]
  - Incorrect dose administered [Recovering/Resolving]
  - Incorrect drug administration duration [Recovered/Resolved]

NARRATIVE: CASE EVENT DATE: 20171211
